FAERS Safety Report 8255612-4 (Version None)
Quarter: 2012Q2

REPORT INFORMATION
  Report Type: 
  Country: None (occurrence: None)
  Receive Date: 20120403
  Receipt Date: 20120327
  Transmission Date: 20120825
  Serious: Yes (Other)
  Sender: FDA-Public Use
  Company Number: PHHY2012MX027391

PATIENT
  Sex: Female

DRUGS (4)
  1. ASPIRIN [Concomitant]
     Dosage: 1 DF, PER DAY
     Dates: start: 20070301
  2. EXFORGE [Suspect]
     Indication: HYPERTENSION
     Dosage: 1 TABLET (160/5 MG) PER DAY
     Dates: start: 20120101
  3. DUFOCAL [Concomitant]
     Indication: HYPERTENSION
     Dosage: 1 DF, UNK
  4. VALERIANA [Concomitant]
     Indication: DEPRESSION
     Dosage: 1 DF, PER DAY

REACTIONS (1)
  - DEPRESSION [None]
